FAERS Safety Report 5446549-4 (Version None)
Quarter: 2007Q3

REPORT INFORMATION
  Report Type: 
  Country: None (occurrence: None)
  Receive Date: 20070907
  Receipt Date: 20070828
  Transmission Date: 20080115
  Serious: Yes (Death, Hospitalization)
  Sender: FDA-Public Use
  Company Number: GB-AMGEN-US219295

PATIENT
  Sex: Female
  Weight: 53.5 kg

DRUGS (16)
  1. ENBREL [Suspect]
     Indication: RHEUMATOID ARTHRITIS
     Route: 058
     Dates: start: 20030901, end: 20070301
  2. METHOTREXATE [Suspect]
     Indication: RHEUMATOID ARTHRITIS
     Dosage: 10 MG WEEKLY
     Route: 048
     Dates: end: 20070301
  3. PREDNISOLONE [Concomitant]
     Indication: RHEUMATOID ARTHRITIS
     Dosage: 5 MG DAILY
     Route: 048
     Dates: end: 20070326
  4. DICLOFENAC SODIUM [Concomitant]
     Indication: RHEUMATOID ARTHRITIS
     Route: 048
     Dates: end: 20070326
  5. DICLOFENAC SODIUM [Concomitant]
     Dosage: UNKNOWN
  6. FOSAMAX [Concomitant]
     Indication: OSTEOPOROSIS PROPHYLAXIS
     Dosage: 70 MG WEEKLY
     Route: 048
     Dates: end: 20070301
  7. CALCICHEW [Concomitant]
     Indication: OSTEOPOROSIS PROPHYLAXIS
     Route: 048
     Dates: end: 20070301
  8. TRAMADOL HCL [Concomitant]
     Indication: ANALGESIA
     Dosage: 50 MG
     Route: 048
  9. CO-DYDRAMOL [Concomitant]
     Indication: ANALGESIA
     Dosage: 30/500MG FREQUENCY UNKNOWN
     Route: 048
  10. ATENOLOL [Concomitant]
     Indication: HYPERTENSION
     Route: 048
  11. PANTOPRAZOLE SODIUM [Concomitant]
     Route: 048
  12. DIAZEPAM [Concomitant]
     Route: 048
  13. FERROUS SULFATE TAB [Concomitant]
     Dosage: UNKNOWN
     Route: 065
  14. CO-PROXAMOL [Concomitant]
     Dosage: UNKNOWN
     Route: 065
  15. DIDRONEL [Concomitant]
     Dosage: UNKNOWN
     Route: 065
  16. PREMPAK-C [Concomitant]
     Dosage: UNKNOWN
     Route: 065

REACTIONS (8)
  - BONE MARROW FAILURE [None]
  - CEREBROVASCULAR DISORDER [None]
  - MULTI-ORGAN FAILURE [None]
  - MYOCARDIAL INFARCTION [None]
  - NEUTROPENIC SEPSIS [None]
  - PNEUMONIA ESCHERICHIA [None]
  - PNEUMONIA STREPTOCOCCAL [None]
  - RENAL FAILURE [None]
